FAERS Safety Report 5528626-2 (Version None)
Quarter: 2007Q4

REPORT INFORMATION
  Report Type: 
  Country: None (occurrence: None)
  Receive Date: 20071109
  Receipt Date: 20070416
  Transmission Date: 20080405
  Serious: Yes (Other)
  Sender: FDA-Public Use
  Company Number: PHEH2007US05368

PATIENT
  Age: 63 Week
  Sex: Female
  Weight: 68 kg

DRUGS (18)
  1. ESTRADERM [Suspect]
     Indication: MENOPAUSE
     Dosage: 0.05 MG, BIW, TRANSDERMAL
     Route: 062
     Dates: start: 19920311, end: 19930311
  2. ESTRADERM [Suspect]
     Indication: MENOPAUSE
     Dosage: 0.05 MG, BIW, TRANSDERMAL
     Route: 062
     Dates: start: 19910101
  3. PROVERA [Suspect]
     Indication: MENOPAUSE
     Dosage: 10 MG ; 2.5 MG
     Dates: start: 19880101, end: 19910101
  4. PROVERA [Suspect]
     Indication: MENOPAUSE
     Dosage: 10 MG ; 2.5 MG
     Dates: end: 20001101
  5. PROVERA [Suspect]
     Indication: MENOPAUSE
     Dosage: 10 MG ; 2.5 MG
     Dates: start: 19901126
  6. PROVERA [Suspect]
     Indication: MENOPAUSE
     Dosage: 10 MG ; 2.5 MG
     Dates: start: 19910101
  7. PREMARIN [Suspect]
     Indication: MENOPAUSE
     Dosage: 0.625MG ; CYCLICAL
     Dates: start: 19880101, end: 19910101
  8. PREMARIN [Suspect]
     Indication: MENOPAUSE
     Dosage: 0.625MG ; CYCLICAL
     Dates: start: 19901126, end: 20001101
  9. PREMARIN [Suspect]
     Indication: MENOPAUSE
     Dosage: TOPICAL
     Route: 061
     Dates: start: 19920311, end: 19971123
  10. CYCRIN [Suspect]
     Indication: MENOPAUSE
     Dosage: 2.5 MG
     Dates: start: 19971117, end: 19971217
  11. CLIMARA [Suspect]
     Dosage: TRANSDERMAL
     Route: 062
  12. MEDROXYPROGESTERONE [Suspect]
     Indication: MENOPAUSE
     Dates: start: 19910101
  13. HORMONES(HORMONES) CREAM [Suspect]
     Indication: MENOPAUSE
     Dosage: CREAM, TOPICAL
     Route: 061
     Dates: start: 19910101
  14. PREDNISONE [Concomitant]
  15. METHOTREXATE [Concomitant]
  16. TAMOXIFEN CITRATE [Concomitant]
  17. ZOLOFT [Concomitant]
  18. PAXIL [Concomitant]

REACTIONS (11)
  - BREAST CANCER [None]
  - BREAST HYPERPLASIA [None]
  - BREAST MASS [None]
  - DEPRESSION [None]
  - FIBROCYSTIC BREAST DISEASE [None]
  - LEIOMYOMA [None]
  - LYMPHADENECTOMY [None]
  - MALIGNANT BREAST LUMP REMOVAL [None]
  - OVARIAN CYST [None]
  - PELVIC PAIN [None]
  - RADIOTHERAPY [None]
